FAERS Safety Report 4848265-6 (Version None)
Quarter: 2005Q4

REPORT INFORMATION
  Report Type: 
  Country: None (occurrence: None)
  Receive Date: 20051206
  Receipt Date: 20051129
  Transmission Date: 20060501
  Serious: Yes (Death, Hospitalization)
  Sender: FDA-Public Use
  Company Number: 163-20785-05110089

PATIENT
  Age: 66 Year
  Sex: Male
  Weight: 73.0291 kg

DRUGS (19)
  1. THALOMID [Suspect]
     Indication: METASTATIC MALIGNANT MELANOMA
     Dosage: 200 MG DAILY ORAL
     Route: 048
     Dates: start: 20050825, end: 20051106
  2. DECADRON [Suspect]
     Indication: METASTATIC MALIGNANT MELANOMA
     Dosage: TAPERED TO 1 MG DAILY UNKNOWN
     Dates: start: 20050817
  3. ZOMETA [Concomitant]
  4. LESCOL [Concomitant]
  5. KLOR-CON [Concomitant]
  6. METFORMIN HCL [Concomitant]
  7. MAG OXIDE (MAGNESIUM OXIDE) [Concomitant]
  8. ZOLOFT [Concomitant]
  9. LASIX [Concomitant]
  10. CALTRATE (CALCIUM CARBONATE) [Concomitant]
  11. PEPCID [Concomitant]
  12. UROPATH [Concomitant]
  13. DIFLUCAN (FLUCONAZOLE) [Concomitant]
  14. KYTRIL [Concomitant]
  15. GLUCOPHAGE [Concomitant]
  16. THERAGRAN (THERAGRAN) [Concomitant]
  17. MIRALAX [Concomitant]
  18. LORTAB [Concomitant]
  19. TEMODAR [Concomitant]

REACTIONS (14)
  - ANAEMIA [None]
  - ASTHENIA [None]
  - CITROBACTER INFECTION [None]
  - CONSTIPATION [None]
  - DEHYDRATION [None]
  - DEPRESSION [None]
  - DISEASE PROGRESSION [None]
  - DIZZINESS [None]
  - FALL [None]
  - HYPOKALAEMIA [None]
  - HYPOMAGNESAEMIA [None]
  - HYPOTENSION [None]
  - MYOPATHY STEROID [None]
  - URINARY TRACT INFECTION [None]
